FAERS Safety Report 9237580 (Version 2)
Quarter: 2013Q2

REPORT INFORMATION
  Report Type: Spontaneous
  Country: FR (occurrence: FR)
  Receive Date: 20130418
  Receipt Date: 20130529
  Transmission Date: 20140414
  Serious: Yes (Hospitalization, Other)
  Sender: FDA-Public Use
  Company Number: FR-AMGEN-FRASP2013025798

PATIENT
  Age: 64 Year
  Sex: Female
  Weight: 70 kg

DRUGS (11)
  1. XGEVA [Suspect]
     Indication: BREAST CANCER
     Dosage: UNK UNK, Q4WK
     Route: 058
     Dates: start: 20130207, end: 20130409
  2. CALCIUM WITH VITAMIN D             /00944201/ [Concomitant]
     Route: 048
  3. METOPROLOL [Concomitant]
     Dosage: 100 MG, QD
  4. OXYCONTIN [Concomitant]
     Dosage: 60 MG, TID
  5. OXYNORM [Concomitant]
     Dosage: 20 MG, AS NECESSARY
  6. PROFENID [Concomitant]
  7. IMOVANE [Concomitant]
  8. PARIET [Concomitant]
  9. PRIMPERAN [Concomitant]
  10. SERESTA [Concomitant]
  11. TAMOXIFEN [Concomitant]

REACTIONS (2)
  - Hypocalcaemia [Unknown]
  - Dysstasia [Unknown]
